FAERS Safety Report 4949355-X (Version None)
Quarter: 2006Q1

REPORT INFORMATION
  Report Type: 
  Country: None (occurrence: None)
  Receive Date: 20060315
  Receipt Date: 20060221
  Transmission Date: 20060701
  Serious: Yes (Hospitalization)
  Sender: FDA-Public Use
  Company Number: US200511001276

PATIENT
  Sex: Female
  Weight: 81.2 kg

DRUGS (3)
  1. ZYPREXA [Suspect]
     Dosage: SEE IMAGE
     Route: 048
     Dates: start: 20010201, end: 20040301
  2. ZYPREXA [Suspect]
     Dosage: SEE IMAGE
     Route: 048
     Dates: start: 20020101
  3. ELAVIL (AMIRIPTYLINE HYDROCHLORIDE) [Concomitant]

REACTIONS (6)
  - DEHYDRATION [None]
  - DIABETES MELLITUS [None]
  - EMOTIONAL DISTRESS [None]
  - GENERAL PHYSICAL HEALTH DETERIORATION [None]
  - PRESCRIBED OVERDOSE [None]
  - ULCER HAEMORRHAGE [None]
